FAERS Safety Report 13718738 (Version 1)
Quarter: 2017Q3

REPORT INFORMATION
  Report Type: Report from Study
  Country: GR (occurrence: GR)
  Receive Date: 20170705
  Receipt Date: 20170705
  Transmission Date: 20171127
  Serious: Yes (Death)
  Sender: FDA-Public Use
  Company Number: GR-PFIZER INC-2017279610

PATIENT
  Age: 13 Month
  Sex: Male

DRUGS (12)
  1. COTRIMOXAZOLE [Concomitant]
     Active Substance: SULFAMETHOXAZOLE\TRIMETHOPRIM
     Indication: SERRATIA INFECTION
  2. AZTREONAM. [Concomitant]
     Active Substance: AZTREONAM
     Indication: SERRATIA INFECTION
  3. VORICONAZOL [Concomitant]
     Active Substance: VORICONAZOLE
     Indication: SEPSIS
     Dosage: UNK
  4. LINEZOLID. [Concomitant]
     Active Substance: LINEZOLID
     Indication: SERRATIA INFECTION
  5. METRONIDAZOLE. [Concomitant]
     Active Substance: METRONIDAZOLE
     Indication: SEPSIS
     Dosage: UNK
  6. TIGECYCLINE. [Suspect]
     Active Substance: TIGECYCLINE
     Indication: SEPSIS
     Dosage: 1.4 MG/KG, 2X/DAY (MAINTENANCE DOSE), 15 MG BID
     Route: 042
  7. AZTREONAM. [Concomitant]
     Active Substance: AZTREONAM
     Indication: SEPSIS
     Dosage: UNK
  8. METRONIDAZOLE. [Concomitant]
     Active Substance: METRONIDAZOLE
     Indication: SERRATIA INFECTION
  9. COTRIMOXAZOLE [Concomitant]
     Active Substance: SULFAMETHOXAZOLE\TRIMETHOPRIM
     Indication: SEPSIS
     Dosage: UNK
  10. LINEZOLID. [Concomitant]
     Active Substance: LINEZOLID
     Indication: SEPSIS
     Dosage: UNK
  11. VORICONAZOL [Concomitant]
     Active Substance: VORICONAZOLE
     Indication: SERRATIA INFECTION
  12. TIGECYCLINE. [Suspect]
     Active Substance: TIGECYCLINE
     Indication: SERRATIA INFECTION

REACTIONS (1)
  - Treatment failure [Fatal]
